FAERS Safety Report 17887270 (Version 1)
Quarter: 2020Q2

REPORT INFORMATION
  Report Type: Spontaneous
  Country: US (occurrence: US)
  Receive Date: 20200611
  Receipt Date: 20200611
  Transmission Date: 20200714
  Serious: Yes (Other)
  Sender: FDA-Public Use
  Company Number: US-BRACCO-2019US06267

PATIENT
  Age: 69 Year
  Sex: Male

DRUGS (2)
  1. MULTIHANCE [Suspect]
     Active Substance: GADOBENATE DIMEGLUMINE
     Indication: MAGNETIC RESONANCE CHOLANGIOPANCREATOGRAPHY
     Dosage: 20 ML, SINGLE
     Route: 042
     Dates: start: 20191121, end: 20191121
  2. LISINOPRIL. [Concomitant]
     Active Substance: LISINOPRIL
     Dosage: UNK

REACTIONS (7)
  - Erythema [Unknown]
  - Respiratory distress [Unknown]
  - Chest pain [Unknown]
  - Urticaria [Unknown]
  - Feeling hot [Unknown]
  - Ocular hyperaemia [Unknown]
  - Pruritus [Unknown]

NARRATIVE: CASE EVENT DATE: 20191121
